FAERS Safety Report 14089865 (Version 1)
Quarter: 2017Q4

REPORT INFORMATION
  Report Type: Spontaneous
  Country: US (occurrence: US)
  Receive Date: 20171014
  Receipt Date: 20171014
  Transmission Date: 20180321
  Serious: No
  Sender: FDA-Public Use
  Company Number: US-SA-2017SA171850

PATIENT
  Sex: Female

DRUGS (1)
  1. AUBAGIO [Suspect]
     Active Substance: TERIFLUNOMIDE
     Indication: MULTIPLE SCLEROSIS
     Route: 048
     Dates: start: 201706

REACTIONS (7)
  - Anal incontinence [Unknown]
  - Change of bowel habit [Unknown]
  - Diarrhoea [Unknown]
  - Memory impairment [Unknown]
  - Depression [Unknown]
  - Depressed mood [Unknown]
  - Decreased interest [Unknown]
